FAERS Safety Report 7704420-9 (Version None)
Quarter: 2011Q3

REPORT INFORMATION
  Report Type: 
  Country: None (occurrence: None)
  Receive Date: 20110823
  Receipt Date: 20110818
  Transmission Date: 20111222
  Serious: Yes (Death)
  Sender: FDA-Public Use
  Company Number: CA-TEVA-297172USA

PATIENT
  Age: 9 Year
  Sex: Male

DRUGS (13)
  1. METHYLPHENIDATE [Suspect]
     Dosage: 40 MILLIGRAM;
  2. ATOMOXETINE HCL [Suspect]
     Dosage: 80 MILLIGRAM;
  3. OLANZAPINE [Suspect]
     Dosage: 7.5 MILLIGRAM;
  4. CLONIDINE [Suspect]
     Dosage: 50 MICROGRAM;
  5. FLUTICASONE PROPIONATE [Suspect]
     Dosage: 500 MICROGRAM;
     Route: 055
  6. OLANZAPINE [Suspect]
     Dosage: 5 MILLIGRAM;
  7. HALOPERIDOL [Suspect]
     Dosage: 2 MILLIGRAM;
  8. QUETIAPINE [Suspect]
     Dosage: 100 MILLIGRAM;
  9. SERTRALINE HYDROCHLORIDE [Suspect]
     Dosage: 20 MILLIGRAM;
  10. CLONIDINE [Suspect]
     Dosage: 100 MICROGRAM;
  11. PROAIR HFA [Suspect]
     Dosage: 400 MICROGRAM;
     Route: 055
  12. MOMETASONE FUROATE [Suspect]
     Dosage: 200 MICROGRAM;
     Route: 045
  13. SERTRALINE HYDROCHLORIDE [Suspect]
     Dosage: 40 MILLIGRAM;

REACTIONS (6)
  - WEIGHT INCREASED [None]
  - GASTRIC DILATATION [None]
  - DYSSTASIA [None]
  - DIZZINESS [None]
  - DYSPNOEA [None]
  - EYE MOVEMENT DISORDER [None]
